FAERS Safety Report 18188617 (Version 1)
Quarter: 2020Q3

REPORT INFORMATION
  Report Type: Report from Study
  Country: None (occurrence: US)
  Receive Date: 20200824
  Receipt Date: 20200824
  Transmission Date: 20201103
  Serious: Yes (Other)
  Sender: FDA-Public Use
  Company Number: US-ABBVIE-19K-163-2891071-00

PATIENT
  Age: 55 Year
  Sex: Female
  Weight: 65.83 kg

DRUGS (5)
  1. HUMIRA [Suspect]
     Active Substance: ADALIMUMAB
     Route: 058
     Dates: start: 202006, end: 20200712
  2. HUMIRA [Suspect]
     Active Substance: ADALIMUMAB
     Indication: RHEUMATOID ARTHRITIS
     Route: 058
     Dates: start: 20200117, end: 20200331
  3. HUMIRA [Suspect]
     Active Substance: ADALIMUMAB
     Route: 058
     Dates: start: 2020, end: 202005
  4. HUMIRA [Suspect]
     Active Substance: ADALIMUMAB
     Indication: ANKYLOSING SPONDYLITIS
     Route: 058
     Dates: start: 20190726, end: 20191208
  5. HYDROCHLOROTHIAZIDE. [Concomitant]
     Active Substance: HYDROCHLOROTHIAZIDE
     Indication: PRODUCT USED FOR UNKNOWN INDICATION

REACTIONS (13)
  - Squamous cell carcinoma of skin [Recovering/Resolving]
  - Skin exfoliation [Recovering/Resolving]
  - Fear of injection [Recovered/Resolved]
  - Nasopharyngitis [Unknown]
  - Skin ulcer [Recovered/Resolved]
  - Facial pain [Recovering/Resolving]
  - Pain [Recovering/Resolving]
  - Squamous cell carcinoma of skin [Unknown]
  - Squamous cell carcinoma of skin [Recovering/Resolving]
  - Squamous cell carcinoma of skin [Recovering/Resolving]
  - Rhinorrhoea [Unknown]
  - Headache [Unknown]
  - Therapeutic product effect incomplete [Not Recovered/Not Resolved]

NARRATIVE: CASE EVENT DATE: 2019
